FAERS Safety Report 5747805-2 (Version None)
Quarter: 2008Q2

REPORT INFORMATION
  Report Type: 
  Country: None (occurrence: None)
  Receive Date: 20080523
  Receipt Date: 20080519
  Transmission Date: 20081010
  Serious: Yes (Other)
  Sender: FDA-Public Use
  Company Number: B0360313A

PATIENT
  Sex: Female

DRUGS (10)
  1. SEROXAT [Suspect]
     Route: 065
     Dates: start: 19970128
  2. PAROXETINE HCL [Suspect]
  3. HRT [Concomitant]
     Route: 065
  4. EFFEXOR [Concomitant]
     Dates: start: 19980306
  5. DIAZEPAM [Concomitant]
     Dates: start: 19800718
  6. AMOXAPINE [Concomitant]
     Dates: start: 19970326
  7. CITALOPRAM HYDROBROMIDE [Concomitant]
     Dates: start: 19990305
  8. ZISPIN [Concomitant]
     Dates: start: 20030107
  9. PROTHIADEN [Concomitant]
     Dates: start: 20020228
  10. LOFEPRAMINE [Concomitant]
     Dates: end: 20020228

REACTIONS (22)
  - ABDOMINAL DISTENSION [None]
  - ABDOMINAL PAIN UPPER [None]
  - AGGRESSION [None]
  - ANOREXIA [None]
  - ASTHENIA [None]
  - DEPRESSION [None]
  - DIARRHOEA [None]
  - DRY MOUTH [None]
  - DYSPNOEA [None]
  - HEADACHE [None]
  - INCREASED APPETITE [None]
  - INFLAMMATORY BOWEL DISEASE [None]
  - INSOMNIA [None]
  - MALAISE [None]
  - NAUSEA [None]
  - PALPITATIONS [None]
  - PARAESTHESIA [None]
  - RASH [None]
  - SUICIDAL IDEATION [None]
  - TEARFULNESS [None]
  - TREMOR [None]
  - WITHDRAWAL SYNDROME [None]
